FAERS Safety Report 17565665 (Version 1)
Quarter: 2020Q1

REPORT INFORMATION
  Report Type: Spontaneous
  Country: US (occurrence: US)
  Receive Date: 20200314
  Receipt Date: 20200314
  Transmission Date: 20200409
  Serious: No
  Sender: FDA-Public Use
  Company Number: None

PATIENT
  Age: 57 Year
  Sex: Female

DRUGS (1)
  1. XELJANZ XR [Suspect]
     Active Substance: TOFACITINIB CITRATE
     Indication: RHEUMATOID ARTHRITIS
     Route: 048
     Dates: start: 20191209, end: 202003

REACTIONS (6)
  - Abdominal pain upper [None]
  - Lower respiratory tract congestion [None]
  - Urinary tract infection [None]
  - Cough [None]
  - Glossodynia [None]
  - Ear pain [None]

NARRATIVE: CASE EVENT DATE: 20200209
